FAERS Safety Report 4696504-7 (Version None)
Quarter: 2005Q2

REPORT INFORMATION
  Report Type: 
  Country: None (occurrence: None)
  Receive Date: 20050621
  Receipt Date: 20050318
  Transmission Date: 20051028
  Serious: Yes (Hospitalization)
  Sender: FDA-Public Use
  Company Number: US-MERCK-0503USA03834

PATIENT
  Age: 68 Year
  Sex: Female
  Weight: 87 kg

DRUGS (6)
  1. IBUPROFEN [Concomitant]
     Route: 065
  2. CLONIDINE [Concomitant]
     Indication: BLOOD PRESSURE
     Route: 065
  3. LISINOPRIL [Concomitant]
     Indication: BLOOD PRESSURE
     Route: 065
  4. VIOXX [Suspect]
     Indication: OSTEOARTHRITIS
     Route: 048
     Dates: start: 20010719, end: 20030101
  5. ICY HOT CREAM [Concomitant]
     Route: 065
  6. ALEVE [Concomitant]
     Route: 065

REACTIONS (8)
  - CARDIAC FAILURE CONGESTIVE [None]
  - CARDIAC MURMUR [None]
  - CHEST PAIN [None]
  - KNEE ARTHROPLASTY [None]
  - MYOCARDIAL INFARCTION [None]
  - OSTEOARTHRITIS [None]
  - ROAD TRAFFIC ACCIDENT [None]
  - SWELLING [None]
